FAERS Safety Report 8966363 (Version 3)
Quarter: 2013Q4

REPORT INFORMATION
  Report Type: Spontaneous
  Country: US (occurrence: None)
  Receive Date: 20121203
  Receipt Date: 20131113
  Transmission Date: 20140711
  Serious: Yes (Hospitalization, Other)
  Sender: FDA-Public Use
  Company Number: 2012033796

PATIENT
  Age: 60 Year
  Sex: Female
  Weight: 54.43 kg

DRUGS (20)
  1. HIZENTRA [Suspect]
     Indication: CHRONIC INFLAMMATORY DEMYELINATING POLYRADICULONEUROPATHY
     Route: 058
     Dates: start: 20130626
  2. BENADRYL [Concomitant]
  3. DECADRON (DEXAMETHASONE) [Concomitant]
  4. SOLU-MEDROL (METHYLPREDNISOLONE SODIUM SUCCINATE) [Concomitant]
  5. ALKA-SELTZER ORIGINAL [Concomitant]
  6. CYMBALTA (DULOXETINE HYDROCHLORIDE) [Concomitant]
  7. CETIRIZINE (CETIRIZINE) [Concomitant]
  8. CYANOCOBALAMIN (CYANOCOBALAMIN) (CYANOCOBALAMIN) [Concomitant]
  9. PROMETHAZINE (PROMETHAZINE) [Concomitant]
  10. ACETAMINOPHEN (PARACETAMOL) [Concomitant]
  11. LIDOCAINE (LIDOCAINE) [Concomitant]
  12. EPI-PEN (EPINEPHRINE HYDROCHLORIDE) [Concomitant]
  13. ACIDOPHILUS (LACTOBACILLUS ACIDOPHILUS) [Concomitant]
  14. VITAMIN B COMPLEX (NICOTINAM. W/PYRIDOXI. HCL/RIBOFL./THIAM. HCL) [Concomitant]
  15. IRON (IRON) [Concomitant]
  16. VITAMIN D (ERGOCALCIFEROL) [Concomitant]
  17. LEG-GESIC MULTI-MINERALS (MINERALS NOS) [Concomitant]
  18. MULTI-VITAMIN MINERAL (MULTIVITAMIN AND MINERAL) [Concomitant]
  19. ALPRAZOLAM (ALPRAZOLAM) [Concomitant]
  20. AMOXICILLIN (AMOXICILLIN) [Concomitant]

REACTIONS (3)
  - Demyelinating polyneuropathy [None]
  - Off label use [None]
  - Meningitis aseptic [None]
